FAERS Safety Report 6769446-0 (Version None)
Quarter: 2010Q2

REPORT INFORMATION
  Report Type: 
  Country: None (occurrence: None)
  Receive Date: 20100615
  Receipt Date: 20100608
  Transmission Date: 20101027
  Serious: Yes (Other)
  Sender: FDA-Public Use
  Company Number: US-SANOFI-AVENTIS-2010SA025140

PATIENT
  Age: 63 Year
  Sex: Male
  Weight: 88.45 kg

DRUGS (10)
  1. MULTAQ [Suspect]
     Indication: ATRIAL FIBRILLATION
     Route: 048
     Dates: start: 20100306, end: 20100427
  2. ATENOLOL [Concomitant]
  3. VYTORIN [Concomitant]
     Dosage: 10-40 MG TABLET DAILY
  4. COUMADIN [Concomitant]
     Indication: ANTICOAGULANT THERAPY
  5. XANAX [Concomitant]
     Indication: ANXIETY
  6. PERCOCET [Concomitant]
     Indication: ROTATOR CUFF REPAIR
  7. SACCHAROMYCES BOULARDII [Concomitant]
     Indication: GASTRIC DISORDER
  8. SACCHAROMYCES BOULARDII [Concomitant]
     Indication: PROBIOTIC THERAPY
  9. ASPIRIN [Concomitant]
  10. OXYCODONE [Concomitant]
     Indication: PAIN

REACTIONS (4)
  - ATRIAL FIBRILLATION [None]
  - DIZZINESS [None]
  - PALPITATIONS [None]
  - VENTRICULAR TACHYCARDIA [None]
